FAERS Safety Report 7790491-0 (Version None)
Quarter: 2011Q3

REPORT INFORMATION
  Report Type: 
  Country: None (occurrence: None)
  Receive Date: 20110930
  Receipt Date: 20110926
  Transmission Date: 20111222
  Serious: Yes (Death, Hospitalization, Other)
  Sender: FDA-Public Use
  Company Number: PHEH2006US09222

PATIENT
  Sex: Male

DRUGS (65)
  1. ASPIRIN [Concomitant]
     Dosage: 81 MG, UNK
  2. CASODEX [Concomitant]
  3. CHEMOTHERAPEUTICS NOS [Concomitant]
  4. CLOPIDOGREL BISULFATE [Concomitant]
     Dosage: 75 MG, UNK
  5. FAMCICLOVIR [Concomitant]
     Dosage: 500 MG, UNK
  6. TERAZOSIN HCL [Concomitant]
     Dosage: 2 MG, UNK
  7. ZOSYN [Concomitant]
     Route: 042
  8. ZOMETA [Suspect]
     Indication: METASTASES TO BONE
     Dates: start: 20030516, end: 20051101
  9. MULTI-VITAMINS [Concomitant]
  10. NAPROXEN [Concomitant]
     Indication: ARTHRITIS
     Dosage: 250 MG, UNK
  11. TAXOTERE [Concomitant]
  12. FENTANYL [Concomitant]
  13. TIAZAC [Concomitant]
  14. VANCOMYCIN [Concomitant]
  15. COZAAR [Concomitant]
     Dosage: 50 MG, QD
     Route: 048
  16. MORPHINE SULFATE [Concomitant]
     Dosage: 5 MG, Q2H
  17. DETROL [Concomitant]
     Dosage: 4 MG, UNK
  18. ZOLADEX [Concomitant]
  19. SENNA [Concomitant]
     Dosage: 8.6 MG, UNK
  20. PENICILLIN VK [Concomitant]
     Dosage: 250 MG, UNK
  21. PROCRIT                            /00909301/ [Concomitant]
  22. TYLENOL W/ CODEINE NO. 3 [Concomitant]
  23. LOVASTATIN [Concomitant]
  24. HYTRIN [Concomitant]
  25. PREDNISONE [Concomitant]
  26. REMERON [Concomitant]
     Dosage: 15 MG, QHS
     Route: 048
  27. TRILISATE [Concomitant]
  28. DEXAMETHASONE [Concomitant]
  29. PERCOCET [Concomitant]
  30. OXYBUTYNIN CHLORIDE [Concomitant]
     Dosage: 5 MG, UNK
  31. SERTRALINE HYDROCHLORIDE [Concomitant]
     Dosage: 100 MG, UNK
  32. CHLORHEXIDINE GLUCONATE [Concomitant]
  33. LOVENOX [Concomitant]
     Dosage: 40 MG, QD
     Route: 058
  34. ZOCOR [Concomitant]
  35. CALCIUM CARBONATE [Concomitant]
  36. LOVAZA [Concomitant]
  37. NYSTATIN [Concomitant]
  38. BICALUTAMIDE [Concomitant]
     Dosage: 50 MG, UNK
  39. SENOKOT                                 /UNK/ [Concomitant]
  40. IRON [Concomitant]
  41. NIACIN [Concomitant]
  42. BACID [Concomitant]
     Dosage: 2 DF, BID
     Route: 048
  43. HALDOL [Concomitant]
     Dosage: 2 MG, Q4H
  44. AUGMENTIN '125' [Concomitant]
     Dosage: 1 DF, BID
     Route: 048
  45. AVAPRO [Concomitant]
  46. ZOLOFT [Concomitant]
     Dosage: 150 MG, UNK
  47. RESTORIL [Concomitant]
  48. OXYCODONE [Concomitant]
     Dosage: 10 MG, UNK
  49. TEMAZEPAM [Concomitant]
     Dosage: 30 MG, UNK
  50. NITROGLYCERIN [Concomitant]
     Dosage: 0.4 MG, UNK
  51. OMEPRAZOLE [Concomitant]
     Dosage: 20 MG, UNK
  52. OXYCONTIN [Concomitant]
  53. MEVACOR [Concomitant]
  54. MORPHINE SULFATE [Concomitant]
     Dosage: 10 MG, Q2H
  55. LOSARTAN POTASSIUM [Concomitant]
     Dosage: 25 MG, UNK
  56. AMOXICILLIN [Concomitant]
     Dosage: 250 MG, UNK
  57. IRBESARTAN [Concomitant]
     Dosage: 300 MG, UNK
  58. GOSERELIN ACETATE [Concomitant]
     Dosage: 10.8 MG, UNK
     Route: 058
  59. LACTULOSE [Concomitant]
     Dosage: 10 MG, UNK
  60. SIMVASTATIN [Concomitant]
     Dosage: 80 MG, UNK
  61. DOCUSATE CALCIUM [Concomitant]
  62. PLAVIX [Concomitant]
  63. VASOTEC [Concomitant]
  64. XOPENEX [Concomitant]
  65. HALDOL [Concomitant]
     Dosage: 4 MG, Q4H

REACTIONS (57)
  - BONE DISORDER [None]
  - INJURY [None]
  - PAIN [None]
  - SPINAL CORD COMPRESSION [None]
  - HYPERTONIC BLADDER [None]
  - DEMENTIA [None]
  - CARDIO-RESPIRATORY ARREST [None]
  - ORAL PAIN [None]
  - SCOLIOSIS [None]
  - NASAL SEPTUM DEVIATION [None]
  - PNEUMONIA [None]
  - INFECTION [None]
  - SUBDURAL HAEMATOMA [None]
  - HAEMATOCHEZIA [None]
  - CHRONIC OBSTRUCTIVE PULMONARY DISEASE [None]
  - ANAEMIA [None]
  - DYSPNOEA [None]
  - COLITIS [None]
  - CEREBRAL ATROPHY [None]
  - PULMONARY VASCULAR DISORDER [None]
  - PLEURAL EFFUSION [None]
  - TOOTH LOSS [None]
  - RENAL CYST [None]
  - FALL [None]
  - HEAD INJURY [None]
  - ARRHYTHMIA [None]
  - NEOPLASM MALIGNANT [None]
  - RIB FRACTURE [None]
  - DEAFNESS NEUROSENSORY [None]
  - HAEMATOCRIT DECREASED [None]
  - SKIN ULCER [None]
  - STOMATITIS [None]
  - INTERVERTEBRAL DISC PROTRUSION [None]
  - SPINAL OSTEOARTHRITIS [None]
  - LACUNAR INFARCTION [None]
  - LUNG INFILTRATION [None]
  - LEFT VENTRICULAR DYSFUNCTION [None]
  - BONE PAIN [None]
  - VERTEBRAL FORAMINAL STENOSIS [None]
  - OTITIS EXTERNA [None]
  - CARDIOMEGALY [None]
  - CEREBRAL ISCHAEMIA [None]
  - ORAL DISORDER [None]
  - BONE LOSS [None]
  - HAEMORRHAGE INTRACRANIAL [None]
  - CONFUSIONAL STATE [None]
  - DYSPEPSIA [None]
  - TENDON CALCIFICATION [None]
  - OSTEONECROSIS OF JAW [None]
  - MASTICATION DISORDER [None]
  - ANXIETY [None]
  - SWELLING [None]
  - SYNCOPE [None]
  - PURPURA [None]
  - LACERATION [None]
  - HAEMOGLOBIN DECREASED [None]
  - METASTASES TO LIVER [None]
